FAERS Safety Report 15097956 (Version 1)
Quarter: 2018Q3

REPORT INFORMATION
  Report Type: Spontaneous
  Country: US (occurrence: US)
  Receive Date: 20180702
  Receipt Date: 20180702
  Transmission Date: 20181010
  Serious: Yes (Other)
  Sender: FDA-Public Use
  Company Number: US-D.O.R.C. INTERNATIONAL, B.V.-2051181

PATIENT

DRUGS (1)
  1. VISIONBLUE [Suspect]
     Active Substance: TRYPAN BLUE
     Indication: CATARACT
     Route: 031
     Dates: start: 20170116, end: 20170116

REACTIONS (1)
  - Toxic anterior segment syndrome [Recovered/Resolved]

NARRATIVE: CASE EVENT DATE: 20170116
